FAERS Safety Report 12522083 (Version 1)
Quarter: 2016Q3

REPORT INFORMATION
  Report Type: Spontaneous
  Country: FR (occurrence: FR)
  Receive Date: 20160701
  Receipt Date: 20160701
  Transmission Date: 20161109
  Serious: Yes (Hospitalization)
  Sender: FDA-Public Use
  Company Number: FR-JNJFOC-20160621937

PATIENT
  Age: 65 Year
  Sex: Male

DRUGS (1)
  1. EPITOMAX [Suspect]
     Active Substance: TOPIRAMATE
     Indication: ESSENTIAL TREMOR
     Route: 048
     Dates: start: 20151028, end: 20151028

REACTIONS (14)
  - Somnolence [Unknown]
  - Nausea [Unknown]
  - Tremor [Not Recovered/Not Resolved]
  - Hyperthermia [Recovered/Resolved]
  - Product use issue [Unknown]
  - Malaise [Recovered/Resolved]
  - Cough [Recovered/Resolved]
  - Drug hypersensitivity [Recovered/Resolved]
  - Dyspnoea [Recovered/Resolved]
  - Rash [Unknown]
  - Dry mouth [Unknown]
  - Back pain [Unknown]
  - Off label use [Unknown]
  - Hypotension [Recovered/Resolved]

NARRATIVE: CASE EVENT DATE: 20151028
